FAERS Safety Report 6608649-2 (Version None)
Quarter: 2010Q1

REPORT INFORMATION
  Report Type: 
  Country: None (occurrence: None)
  Receive Date: 20100226
  Receipt Date: 20100226
  Transmission Date: 20100710
  Serious: Yes (Hospitalization)
  Sender: FDA-Public Use
  Company Number: None

PATIENT
  Age: 25 Year
  Sex: Male
  Weight: 83.9154 kg

DRUGS (6)
  1. DIVALPROEX SODIUM [Suspect]
     Dosage: 1000MG PO
     Route: 048
  2. DIVALPROEX SODIUM [Concomitant]
  3. ARIPIPRAZOLE [Concomitant]
  4. LORAZEPAM [Concomitant]
  5. OLANZAPINE [Concomitant]
  6. HYDROXYZINE [Concomitant]

REACTIONS (1)
  - LIVER FUNCTION TEST ABNORMAL [None]
